FAERS Safety Report 16821830 (Version 2)
Quarter: 2019Q4

REPORT INFORMATION
  Report Type: Spontaneous
  Country: US (occurrence: US)
  Receive Date: 20190918
  Receipt Date: 20191014
  Transmission Date: 20200122
  Serious: Yes (Other)
  Sender: FDA-Public Use
  Company Number: US-PFIZER INC-2019398256

PATIENT
  Age: 63 Year
  Sex: Male
  Weight: 86.17 kg

DRUGS (11)
  1. POTASSIUM CHLORIDE. [Concomitant]
     Active Substance: POTASSIUM CHLORIDE
     Dosage: 20 MEQ, 2X/DAY
  2. METFORMIN [Concomitant]
     Active Substance: METFORMIN HYDROCHLORIDE
     Indication: DIABETES MELLITUS
     Dosage: 800 MG, 2X/DAY
  3. ARICEPT [Concomitant]
     Active Substance: DONEPEZIL HYDROCHLORIDE
     Dosage: 10 MG, 1X/DAY (AT NIGHT)
     Dates: start: 2013
  4. PREDNISONE. [Suspect]
     Active Substance: PREDNISONE
     Dosage: 60 MG, UNK
  5. LIPITOR [Suspect]
     Active Substance: ATORVASTATIN CALCIUM
     Indication: BLOOD CHOLESTEROL ABNORMAL
     Dosage: 80 MG, 1X/DAY
     Route: 048
     Dates: end: 201705
  6. METHOTREXATE. [Concomitant]
     Active Substance: METHOTREXATE
     Dosage: 2.5 MG TABLET, AT 12 TABLETS ONCE A WEEK
  7. LISINOPRIL. [Concomitant]
     Active Substance: LISINOPRIL
     Dosage: 2.5 MG, DAILY
  8. POTASSIUM CITRATE. [Concomitant]
     Active Substance: POTASSIUM CITRATE
     Indication: NEPHROLITHIASIS
     Dosage: 30 MEQ, 2X/DAY
     Route: 048
  9. VICTOZA [Concomitant]
     Active Substance: LIRAGLUTIDE
     Indication: BLOOD GLUCOSE ABNORMAL
     Dosage: UNK, 1X/DAY (EVERY NIGHT)
  10. HYDROCHLOROTHIAZIDE. [Concomitant]
     Active Substance: HYDROCHLOROTHIAZIDE
     Dosage: 25 MG, 2X/DAY
  11. REMERON [Concomitant]
     Active Substance: MIRTAZAPINE
     Dosage: 15 MG, 1X/DAY (ONE TABLET NIGHTLY)

REACTIONS (1)
  - Necrotising myositis [Not Recovered/Not Resolved]

NARRATIVE: CASE EVENT DATE: 201705
